FAERS Safety Report 9242401 (Version 2)
Quarter: 2013Q2

REPORT INFORMATION
  Report Type: Spontaneous
  Country: BR (occurrence: BR)
  Receive Date: 20130419
  Receipt Date: 20130506
  Transmission Date: 20140414
  Serious: Yes (Hospitalization, Other)
  Sender: FDA-Public Use
  Company Number: BR-AMGEN-BRASP2013023868

PATIENT
  Age: 46 Year
  Sex: Female
  Weight: 85 kg

DRUGS (2)
  1. ENBREL [Suspect]
     Indication: RHEUMATOID ARTHRITIS
     Dosage: 50 MG, 1X/WEEK
     Dates: start: 20130212
  2. BENICAR [Concomitant]
     Dosage: 20 MG, 1X/DAY (ONE TABLET DAILY)
     Dates: start: 2010

REACTIONS (2)
  - Nodule [Unknown]
  - Urinary tract infection [Unknown]
